FAERS Safety Report 10082383 (Version 2)
Quarter: 2014Q2

REPORT INFORMATION
  Report Type: Report from Study
  Country: US (occurrence: US)
  Receive Date: 20140416
  Receipt Date: 20140429
  Transmission Date: 20141212
  Serious: Yes (Other)
  Sender: FDA-Public Use
  Company Number: PHEH2014US007197

PATIENT
  Sex: Female

DRUGS (13)
  1. EXFORGE [Suspect]
     Dosage: 1 DF (320 MG VALS/ 10 MG AMLO), DAILY
  2. BYSTOLIC [Concomitant]
     Dosage: 5 MG, UNK
  3. LEVEMIR FLEXPEN [Concomitant]
     Dosage: 11 U, UNK
  4. HUMALOG [Concomitant]
  5. LUNESTA [Concomitant]
     Dosage: 3 MG, UNK
  6. MONTELUKAST SOD [Concomitant]
  7. VENTOLINE [Concomitant]
  8. SIMBICORT [Concomitant]
  9. LANSOPRAZOLE [Concomitant]
     Dosage: 30 MG, UNK
  10. GABAPENTIN [Concomitant]
  11. MAGNESIUM [Concomitant]
  12. PROBIOTICS [Concomitant]
  13. ESTROGEN W/METHYLTESTOS FS [Concomitant]

REACTIONS (4)
  - Exostosis [Unknown]
  - Intervertebral disc degeneration [Unknown]
  - Spinal cord compression [Unknown]
  - Hemiparesis [Unknown]
